FAERS Safety Report 6928254-8 (Version None)
Quarter: 2010Q3

REPORT INFORMATION
  Report Type: 
  Country: None (occurrence: None)
  Receive Date: 20100817
  Receipt Date: 20100806
  Transmission Date: 20110219
  Serious: Yes (Death, Other)
  Sender: FDA-Public Use
  Company Number: CA-ROCHE-719544

PATIENT
  Sex: Female
  Weight: 52 kg

DRUGS (2)
  1. AVASTIN [Suspect]
     Route: 042
     Dates: start: 20091202, end: 20100323
  2. TAXANES [Suspect]
     Dosage: DRUG NAME REPORTED AS ^TAXANE^
     Route: 065
     Dates: end: 20100101

REACTIONS (6)
  - ASCITES [None]
  - HEPATIC ENCEPHALOPATHY [None]
  - HEPATIC FUNCTION ABNORMAL [None]
  - JAUNDICE [None]
  - MALIGNANT NEOPLASM PROGRESSION [None]
  - PORTAL HYPERTENSION [None]
